FAERS Safety Report 14091884 (Version 1)
Quarter: 2017Q4

REPORT INFORMATION
  Report Type: Spontaneous
  Country: IT (occurrence: IT)
  Receive Date: 20171016
  Receipt Date: 20171016
  Transmission Date: 20180321
  Serious: Yes (Other)
  Sender: FDA-Public Use
  Company Number: PHHY2017IT150842

PATIENT
  Age: 74 Year
  Sex: Male

DRUGS (1)
  1. EXELON PATCH [Suspect]
     Active Substance: RIVASTIGMINE
     Indication: MIXED DEMENTIA
     Dosage: 13.3 MG QD (PATCH 15 (CM2), 1 POSOLOGIC UNIT
     Route: 062

REACTIONS (4)
  - Constipation [Recovered/Resolved]
  - Psychomotor hyperactivity [Recovered/Resolved]
  - Electrolyte imbalance [Unknown]
  - Dyspepsia [Recovered/Resolved]

NARRATIVE: CASE EVENT DATE: 20170430
